FAERS Safety Report 4446138-4 (Version None)
Quarter: 2004Q3

REPORT INFORMATION
  Report Type: 
  Country: None (occurrence: None)
  Receive Date: 20040907
  Receipt Date: 20040826
  Transmission Date: 20050211
  Serious: Yes (Hospitalization)
  Sender: FDA-Public Use
  Company Number: FR-ROCHE-378578

PATIENT
  Age: 62 Year
  Sex: Male

DRUGS (6)
  1. NICARDIPINE HCL [Suspect]
     Indication: DRUG USE FOR UNKNOWN INDICATION
     Route: 048
     Dates: start: 20030615
  2. XATRAL [Suspect]
     Route: 048
  3. HYPERIUM [Suspect]
     Route: 048
     Dates: start: 20021015
  4. APROVEL [Suspect]
     Route: 048
     Dates: start: 20021015
  5. NEXIUM [Suspect]
     Route: 048
     Dates: start: 20031215, end: 20040729
  6. DIAMICRON [Suspect]
     Route: 048
     Dates: start: 20020416, end: 20040728

REACTIONS (9)
  - BLOOD CREATININE ABNORMAL [None]
  - BLOOD FIBRINOGEN INCREASED [None]
  - BLOOD LACTATE DEHYDROGENASE INCREASED [None]
  - C-REACTIVE PROTEIN INCREASED [None]
  - INFLUENZA LIKE ILLNESS [None]
  - NORMOCHROMIC NORMOCYTIC ANAEMIA [None]
  - PANCYTOPENIA [None]
  - RED BLOOD CELL SEDIMENTATION RATE INCREASED [None]
  - RENAL COLIC [None]
